FAERS Safety Report 10207893 (Version 1)
Quarter: 2014Q2

REPORT INFORMATION
  Report Type: Spontaneous
  Country: US (occurrence: US)
  Receive Date: 20140530
  Receipt Date: 20140530
  Transmission Date: 20141212
  Serious: No
  Sender: FDA-Public Use
  Company Number: US-GLAXOSMITHKLINE-A1064114A

PATIENT
  Age: 68 Year
  Sex: Female

DRUGS (3)
  1. VENTOLIN [Suspect]
     Indication: ASTHMA
     Dosage: 1SPR FOUR TIMES PER DAY
     Route: 055
     Dates: start: 201401, end: 201403
  2. NORVASC [Concomitant]
  3. ATENOLOL [Concomitant]

REACTIONS (3)
  - Oxygen saturation abnormal [Not Recovered/Not Resolved]
  - Drug ineffective [Unknown]
  - Product quality issue [Unknown]
